FAERS Safety Report 7507969-7 (Version None)
Quarter: 2011Q2

REPORT INFORMATION
  Report Type: 
  Country: None (occurrence: None)
  Receive Date: 20110527
  Receipt Date: 20110516
  Transmission Date: 20111010
  Serious: Yes (Disabling)
  Sender: FDA-Public Use
  Company Number: DE-JNJFOC-20100405833

PATIENT
  Age: 71 Year
  Sex: Male

DRUGS (2)
  1. LEVOFLOXACIN [Suspect]
     Indication: PROSTATITIS
     Route: 048
     Dates: start: 20091218, end: 20100101
  2. LEVOFLOXACIN [Suspect]
     Indication: PROSTATIC SPECIFIC ANTIGEN INCREASED
     Route: 048
     Dates: start: 20091218, end: 20100101

REACTIONS (11)
  - MYALGIA [None]
  - POLYMYALGIA RHEUMATICA [None]
  - INFLAMMATION [None]
  - MUSCULAR WEAKNESS [None]
  - TENDON PAIN [None]
  - HEART RATE INCREASED [None]
  - PAIN IN EXTREMITY [None]
  - FAECAL VOLUME DECREASED [None]
  - TEMPERATURE INTOLERANCE [None]
  - ARTHRALGIA [None]
  - BACK PAIN [None]
